FAERS Safety Report 8923238 (Version 1)
Quarter: 2012Q4

REPORT INFORMATION
  Report Type: 
  Country: US (occurrence: US)
  Receive Date: 20121124
  Receipt Date: 20121124
  Transmission Date: 20130627
  Serious: Yes (Other)
  Sender: FDA-Public Use
  Company Number: US-BAYER-2012-121984

PATIENT
  Sex: Female

DRUGS (2)
  1. BAYER GENUINE ASPIRIN ORIGINAL STRENGTH [Suspect]
     Dosage: UNK
     Route: 065
     Dates: start: 2009
  2. PLAVIX [Suspect]
     Dosage: UNK
     Route: 048
     Dates: start: 2009

REACTIONS (1)
  - Transient ischaemic attack [None]
